FAERS Safety Report 4355393-0 (Version None)
Quarter: 2004Q2

REPORT INFORMATION
  Report Type: 
  Country: None (occurrence: None)
  Receive Date: 20040504
  Receipt Date: 20040421
  Transmission Date: 20050107
  Serious: Yes (Death, Hospitalization)
  Sender: FDA-Public Use
  Company Number: DE-JNJFOC-20040200986

PATIENT
  Age: 58 Year
  Sex: Male
  Weight: 90 kg

DRUGS (10)
  1. RISPERDAL [Suspect]
     Indication: SCHIZOPHRENIA, PARANOID TYPE
     Dosage: SEE IMAGE
     Route: 048
     Dates: start: 20031210, end: 20040102
  2. RISPERDAL [Suspect]
     Indication: SCHIZOPHRENIA, PARANOID TYPE
     Dosage: SEE IMAGE
     Route: 048
     Dates: start: 20040102, end: 20040109
  3. RISPERDAL [Suspect]
     Indication: SCHIZOPHRENIA, PARANOID TYPE
     Dosage: SEE IMAGE
     Route: 048
     Dates: start: 20031208
  4. RISPERDAL [Suspect]
     Indication: SCHIZOPHRENIA, PARANOID TYPE
     Dosage: SEE IMAGE
     Route: 048
     Dates: start: 20031209
  5. . [Concomitant]
  6. . [Concomitant]
  7. . [Concomitant]
  8. METFORMIN (METFORMIN) TABLETS [Concomitant]
  9. LACTULOSE [Concomitant]
  10. EUGLOCON (GLIBENCLAMIDE) TABLETS [Concomitant]

REACTIONS (25)
  - AGORAPHOBIA [None]
  - ARRHYTHMIA [None]
  - BLOOD CREATINE PHOSPHOKINASE MB INCREASED [None]
  - BLOOD GLUCOSE INCREASED [None]
  - BUNDLE BRANCH BLOCK LEFT [None]
  - DEEP VEIN THROMBOSIS [None]
  - ELECTROCARDIOGRAM POOR R-WAVE PROGRESSION [None]
  - ELECTROCARDIOGRAM ST SEGMENT DEPRESSION [None]
  - ELECTROCARDIOGRAM ST SEGMENT ELEVATION [None]
  - ELECTROCARDIOGRAM T WAVE INVERSION [None]
  - EXTRAPYRAMIDAL DISORDER [None]
  - NEUROLEPTIC MALIGNANT SYNDROME [None]
  - OXYGEN SATURATION DECREASED [None]
  - PALPITATIONS [None]
  - PARKINSONISM [None]
  - PNEUMONIA [None]
  - PULMONARY EMBOLISM [None]
  - QRS AXIS ABNORMAL [None]
  - RESTLESSNESS [None]
  - SALIVARY HYPERSECRETION [None]
  - SLEEP DISORDER [None]
  - THINKING ABNORMAL [None]
  - TROPONIN I INCREASED [None]
  - VENTRICULAR HYPERTROPHY [None]
  - VERTIGO [None]
